FAERS Safety Report 4453169-7 (Version None)
Quarter: 2004Q3

REPORT INFORMATION
  Report Type: 
  Country: None (occurrence: None)
  Receive Date: 20040917
  Receipt Date: 20040902
  Transmission Date: 20050211
  Serious: Yes (Hospitalization)
  Sender: FDA-Public Use
  Company Number: 2004AL000038

PATIENT
  Age: 46 Year
  Sex: Male

DRUGS (5)
  1. LORAZEPAM [Suspect]
     Indication: AGITATION
     Dosage: SEE IMAGE
  2. LORAZEPAM [Suspect]
     Indication: TACHYCARDIA
     Dosage: SEE IMAGE
  3. HALOPERIDOL LACTATE ORAL SOLUTION USP, EQ. 1MG [Suspect]
     Indication: AGITATION
     Dosage: SEEE IMAGE
  4. HALOPERIDOL LACTATE ORAL SOLUTION USP, EQ. 1MG [Suspect]
     Indication: TACHYCARDIA
     Dosage: SEEE IMAGE
  5. RISPERIDONE [Concomitant]

REACTIONS (4)
  - DRUG INTERACTION POTENTIATION [None]
  - ELECTROCARDIOGRAM QT CORRECTED INTERVAL PROLONGED [None]
  - SINUS TACHYCARDIA [None]
  - VENTRICULAR DYSFUNCTION [None]
